FAERS Safety Report 5092294-7 (Version None)
Quarter: 2006Q3

REPORT INFORMATION
  Report Type: 
  Country: None (occurrence: None)
  Receive Date: 20060825
  Receipt Date: 20060808
  Transmission Date: 20061208
  Serious: Yes (Life-Threatening)
  Sender: FDA-Public Use
  Company Number: US200607005028

PATIENT
  Age: 62 Year
  Sex: Female

DRUGS (11)
  1. CYMBALTA [Suspect]
     Indication: ANXIETY
     Dosage: 60 MG, 2/D
     Dates: start: 20060401
  2. PROTONIX [Concomitant]
  3. NEURONTIN [Concomitant]
  4. CLONAZEPAM [Concomitant]
  5. HYDROCHLOROTHIAZIDE [Concomitant]
  6. ESTROGENS [Concomitant]
  7. ATENOLOL [Concomitant]
  8. TOPROL-XL [Concomitant]
  9. FLEXERIL [Concomitant]
  10. MAXALT [Concomitant]
  11. DESIPRAMINE HCL [Concomitant]

REACTIONS (1)
  - ANTIDEPRESSANT DRUG LEVEL INCREASED [None]
